FAERS Safety Report 9282873 (Version 1)
Quarter: 2013Q2

REPORT INFORMATION
  Report Type: Spontaneous
  Country: US (occurrence: US)
  Receive Date: 20130510
  Receipt Date: 20130510
  Transmission Date: 20140414
  Serious: Yes (Other)
  Sender: FDA-Public Use
  Company Number: US-PFIZER INC-2013141562

PATIENT
  Age: 49 Year
  Sex: Female
  Weight: 52.1 kg

DRUGS (3)
  1. LEVOXYL [Suspect]
     Indication: AUTOIMMUNE THYROIDITIS
     Dosage: 25 UG, 1X/DAY
     Dates: start: 2003
  2. LEVOXYL [Suspect]
     Indication: HYPOTHYROIDISM
  3. DEXAMETHASONE [Concomitant]
     Indication: ADRENAL DISORDER
     Dosage: SPLITTING 0.5 MG TABLET AND TAKING QUARTER OF IT , UNK

REACTIONS (4)
  - Arrhythmia [Recovered/Resolved]
  - Feeling jittery [Recovered/Resolved]
  - Headache [Recovered/Resolved]
  - Gastrooesophageal reflux disease [Not Recovered/Not Resolved]
